FAERS Safety Report 20671547 (Version 1)
Quarter: 2022Q2

REPORT INFORMATION
  Report Type: Spontaneous
  Country: US (occurrence: US)
  Receive Date: 20220404
  Receipt Date: 20220404
  Transmission Date: 20220721
  Serious: Yes (Death, Other)
  Sender: FDA-Public Use
  Company Number: US-BRISTOL-MYERS SQUIBB COMPANY-2022-014116

PATIENT
  Age: 72 Year
  Sex: Male

DRUGS (2)
  1. ABRAXANE [Suspect]
     Active Substance: PACLITAXEL
     Indication: Product used for unknown indication
     Route: 042
  2. ABRAXANE [Suspect]
     Active Substance: PACLITAXEL
     Dosage: INFUSE 191 MG INTRAVENOUSLY ON DAY1,8AND EVERY15AND 28
     Route: 042

REACTIONS (1)
  - Death [Fatal]
